FAERS Safety Report 4655319-6 (Version None)
Quarter: 2005Q2

REPORT INFORMATION
  Report Type: 
  Country: None (occurrence: None)
  Receive Date: 20050505
  Receipt Date: 20050420
  Transmission Date: 20051028
  Serious: Yes (Hospitalization, Other)
  Sender: FDA-Public Use
  Company Number: USA050495140

PATIENT
  Age: 67 Year
  Sex: Male
  Weight: 105 kg

DRUGS (2)
  1. GEMZAR [Suspect]
     Indication: NON-SMALL CELL LUNG CANCER
     Dosage: 1 G/M2/1 OTHER
     Dates: start: 20050202, end: 20050322
  2. NAVELBINE [Concomitant]

REACTIONS (3)
  - DRUG EFFECT DECREASED [None]
  - FLUID RETENTION [None]
  - PULMONARY EMBOLISM [None]
